FAERS Safety Report 13303754 (Version 1)
Quarter: 2017Q1

REPORT INFORMATION
  Report Type: Spontaneous
  Country: US (occurrence: US)
  Receive Date: 20170307
  Receipt Date: 20170307
  Transmission Date: 20170428
  Serious: No
  Sender: FDA-Public Use
  Company Number: US-PRINSTON PHARMACEUTICAL INC.-2016PRN00361

PATIENT
  Age: 57 Year
  Sex: Female
  Weight: 81.63 kg

DRUGS (8)
  1. VALSARTAN AND HYDROCHLOROTHIAZIDE [Suspect]
     Active Substance: HYDROCHLOROTHIAZIDE\VALSARTAN
     Indication: HYPERTENSION
     Dosage: 1 TABLETS, 1X/DAY AT NIGHT
     Route: 048
     Dates: start: 201612, end: 20161217
  2. HUMALOG [Concomitant]
     Active Substance: INSULIN LISPRO
  3. GLIPIZIDE. [Concomitant]
     Active Substance: GLIPIZIDE
  4. LANTUS [Concomitant]
     Active Substance: INSULIN GLARGINE
     Dosage: UNK
  5. BYETTA [Concomitant]
     Active Substance: EXENATIDE
  6. VITAMIN D [Concomitant]
     Active Substance: CHOLECALCIFEROL
  7. ATORVASTATIN [Concomitant]
     Active Substance: ATORVASTATIN
  8. VITAMIN B [Concomitant]
     Active Substance: VITAMIN B

REACTIONS (7)
  - Dysgeusia [Recovering/Resolving]
  - Gingival pain [Recovered/Resolved]
  - Product substitution issue [Not Recovered/Not Resolved]
  - Vision blurred [Recovering/Resolving]
  - Feeling abnormal [Recovering/Resolving]
  - Coating in mouth [Recovering/Resolving]
  - Dry mouth [Recovering/Resolving]

NARRATIVE: CASE EVENT DATE: 201612
